FAERS Safety Report 19934256 (Version 2)
Quarter: 2021Q4

REPORT INFORMATION
  Report Type: Spontaneous
  Country: KR (occurrence: KR)
  Receive Date: 20211008
  Receipt Date: 20211021
  Transmission Date: 20220303
  Serious: Yes (Hospitalization, Other)
  Sender: FDA-Public Use
  Company Number: KR-JNJFOC-20211002088

PATIENT
  Sex: Female

DRUGS (3)
  1. SPRAVATO [Suspect]
     Active Substance: ESKETAMINE
     Indication: Depression
  2. SPRAVATO [Suspect]
     Active Substance: ESKETAMINE
  3. LITHAN [Concomitant]

REACTIONS (10)
  - Intentional self-injury [Unknown]
  - Suicidal ideation [Unknown]
  - Drug ineffective [Unknown]
  - Headache [Recovered/Resolved]
  - Nausea [Recovered/Resolved]
  - Vomiting [Recovered/Resolved]
  - Dizziness [Unknown]
  - Anxiety [Recovered/Resolved]
  - Confusional state [Unknown]
  - Fatigue [Unknown]
